FAERS Safety Report 15389652 (Version 1)
Quarter: 2018Q3

REPORT INFORMATION
  Report Type: Spontaneous
  Country: US (occurrence: US)
  Receive Date: 20180917
  Receipt Date: 20180917
  Transmission Date: 20181010
  Serious: No
  Sender: FDA-Public Use
  Company Number: US-TEVA-805980ACC

PATIENT
  Sex: Female

DRUGS (3)
  1. FENTANYL. [Suspect]
     Active Substance: FENTANYL
     Dates: start: 20170814
  2. FENTANYL. [Suspect]
     Active Substance: FENTANYL
     Dates: start: 20170821
  3. FENTANYL. [Suspect]
     Active Substance: FENTANYL
     Indication: PAIN
     Dates: start: 20170807

REACTIONS (3)
  - Drug ineffective [Unknown]
  - Headache [Unknown]
  - Wheezing [Unknown]

NARRATIVE: CASE EVENT DATE: 20170811
